FAERS Safety Report 13297563 (Version 2)
Quarter: 2017Q2

REPORT INFORMATION
  Report Type: Spontaneous
  Country: US (occurrence: US)
  Receive Date: 20170306
  Receipt Date: 20170425
  Transmission Date: 20170830
  Serious: Yes (Other)
  Sender: FDA-Public Use
  Company Number: US-ASTELLAS-2017US004503

PATIENT
  Age: 50 Year
  Sex: Female

DRUGS (1)
  1. VESICARE [Suspect]
     Active Substance: SOLIFENACIN SUCCINATE
     Indication: STRESS URINARY INCONTINENCE
     Route: 048
     Dates: end: 201702

REACTIONS (4)
  - Malaise [Unknown]
  - Off label use [Unknown]
  - Gallbladder non-functioning [Recovered/Resolved]
  - Tracheostomy malfunction [Not Recovered/Not Resolved]

NARRATIVE: CASE EVENT DATE: 201701
